FAERS Safety Report 8598759-5 (Version None)
Quarter: 2012Q3

REPORT INFORMATION
  Report Type: 
  Country: None (occurrence: None)
  Receive Date: 20120816
  Receipt Date: 19960710
  Transmission Date: 20120928
  Serious: Yes (Hospitalization)
  Sender: FDA-Public Use
  Company Number: US-ROCHE-1100727

PATIENT
  Sex: Female

DRUGS (2)
  1. ACTIVASE [Suspect]
     Indication: ACUTE MYOCARDIAL INFARCTION
  2. TRIDIL [Concomitant]

REACTIONS (3)
  - CHEST PAIN [None]
  - BLOOD CREATINE PHOSPHOKINASE MB INCREASED [None]
  - HYPOTENSION [None]
